FAERS Safety Report 5480945-4 (Version None)
Quarter: 2007Q4

REPORT INFORMATION
  Report Type: 
  Country: None (occurrence: None)
  Receive Date: 20071009
  Receipt Date: 20070928
  Transmission Date: 20080405
  Serious: Yes (Other)
  Sender: FDA-Public Use
  Company Number: JP-PFIZER INC-2007078936

PATIENT
  Sex: Male

DRUGS (10)
  1. NORVASC [Suspect]
     Indication: HYPERTENSION
     Route: 048
  2. XALATAN [Interacting]
     Indication: GLAUCOMA
     Dosage: FREQ:FREQUENCY: QD
     Route: 031
  3. KLARICID [Interacting]
     Indication: PERIODONTITIS
     Route: 048
     Dates: start: 20070711, end: 20070712
  4. GLYBURIDE [Interacting]
     Indication: DIABETES MELLITUS
     Route: 048
  5. APRINDINE HYDROCHLORIDE [Interacting]
     Indication: ARRHYTHMIA
     Route: 048
  6. VERAPAMIL HYDROCHLORIDE [Interacting]
     Indication: MYOCARDIAL ISCHAEMIA
     Route: 048
  7. PONTAL [Interacting]
     Indication: PERIODONTITIS
     Route: 048
     Dates: start: 20070711, end: 20070712
  8. PANTETHINE [Interacting]
     Dosage: DAILY DOSE:2GRAM-FREQ:TID
     Route: 048
  9. BIO THREE [Interacting]
     Dosage: DAILY DOSE:2GRAM-FREQ:TID
     Route: 048
  10. MAGNESIUM OXIDE [Interacting]
     Dosage: DAILY DOSE:2GRAM-FREQ:TID
     Route: 048

REACTIONS (3)
  - DIZZINESS [None]
  - DRUG INTERACTION [None]
  - NOCTURIA [None]
